FAERS Safety Report 18487256 (Version 2)
Quarter: 2020Q4

REPORT INFORMATION
  Report Type: Spontaneous
  Country: US (occurrence: US)
  Receive Date: 20201110
  Receipt Date: 20201112
  Transmission Date: 20210114
  Serious: No
  Sender: FDA-Public Use
  Company Number: US-PFIZER INC-2020437440

PATIENT
  Age: 59 Year
  Sex: Female
  Weight: 63.05 kg

DRUGS (1)
  1. NALBUPHINE HYDROCHLORIDE. [Suspect]
     Active Substance: NALBUPHINE HYDROCHLORIDE
     Indication: MIGRAINE
     Dosage: UNK UNK, AS NEEDED (DOCTOR SAYS 1CC EVERY 6 TO 8 HOURS AS NEEDED, FOR YEARS TAKES 0.5CC ONCE DAILY,
     Dates: start: 2000, end: 202009

REACTIONS (5)
  - Headache [Not Recovered/Not Resolved]
  - Nausea [Not Recovered/Not Resolved]
  - Vomiting [Not Recovered/Not Resolved]
  - Nervousness [Unknown]
  - Anxiety [Unknown]
